FAERS Safety Report 18238560 (Version 3)
Quarter: 2022Q3

REPORT INFORMATION
  Report Type: Report from Study
  Country: JP (occurrence: JP)
  Receive Date: 20200907
  Receipt Date: 20220421
  Transmission Date: 20221027
  Serious: Yes (Death, Hospitalization, Other)
  Sender: FDA-Public Use
  Company Number: JP-002147023-PHJP2017JP037632

PATIENT

DRUGS (20)
  1. RUXOLITINIB [Suspect]
     Active Substance: RUXOLITINIB
     Indication: Myelofibrosis
     Dosage: 5 MG, BID
     Route: 048
     Dates: start: 20150113, end: 20150310
  2. RUXOLITINIB [Suspect]
     Active Substance: RUXOLITINIB
     Dosage: 10 MG, BID
     Route: 048
     Dates: start: 20150311, end: 20150519
  3. RUXOLITINIB [Suspect]
     Active Substance: RUXOLITINIB
     Dosage: 5 MG, BID
     Route: 048
     Dates: start: 20150520, end: 20170214
  4. RUXOLITINIB [Suspect]
     Active Substance: RUXOLITINIB
     Dosage: 5 MG, BID
     Route: 048
     Dates: start: 20170310, end: 20170317
  5. RUXOLITINIB [Suspect]
     Active Substance: RUXOLITINIB
     Dosage: 10 MG, BID
     Route: 048
     Dates: start: 20170318, end: 20170414
  6. ALKERAN [Suspect]
     Active Substance: MELPHALAN
     Indication: Product used for unknown indication
     Dosage: 100 MG, UNK
     Route: 058
     Dates: start: 20170418, end: 20170419
  7. FLUDARA [Suspect]
     Active Substance: FLUDARABINE PHOSPHATE
     Indication: Product used for unknown indication
     Dosage: 42 MG, UNK
     Route: 058
     Dates: start: 20170415, end: 20170419
  8. METHOTREXATE [Suspect]
     Active Substance: METHOTREXATE
     Indication: Product used for unknown indication
     Dosage: 14.2 MG, UNK
     Route: 058
     Dates: start: 20170422
  9. METHOTREXATE [Suspect]
     Active Substance: METHOTREXATE
     Dosage: 10 MG, UNK
     Route: 058
     Dates: start: 20170424, end: 20170427
  10. ACYCLOVIR [Concomitant]
     Active Substance: ACYCLOVIR
     Indication: Opportunistic infection prophylaxis
     Dosage: 200 MILLIGRAM
     Route: 048
     Dates: start: 20150211, end: 20150714
  11. ACYCLOVIR [Concomitant]
     Active Substance: ACYCLOVIR
     Dosage: 1000 MG, UNK
     Route: 048
     Dates: start: 20150812, end: 20150818
  12. ACYCLOVIR [Concomitant]
     Active Substance: ACYCLOVIR
     Dosage: 200 MG, UNK
     Route: 048
     Dates: start: 20160415, end: 20160622
  13. ACYCLOVIR [Concomitant]
     Active Substance: ACYCLOVIR
     Dosage: 200 MG, UNK
     Route: 048
     Dates: start: 20160817, end: 20160920
  14. ACYCLOVIR [Concomitant]
     Active Substance: ACYCLOVIR
     Dosage: 200 MG, UNK
     Route: 048
     Dates: start: 20161109, end: 20161213
  15. ACYCLOVIR [Concomitant]
     Active Substance: ACYCLOVIR
     Dosage: 200 MG, UNK
     Route: 048
     Dates: start: 20170214, end: 20170320
  16. ACYCLOVIR [Concomitant]
     Active Substance: ACYCLOVIR
     Dosage: 200 MG, UNK
     Route: 048
     Dates: start: 20170418, end: 20170427
  17. HUMAN RED BLOOD CELL [Concomitant]
     Active Substance: HUMAN RED BLOOD CELL
     Indication: Myelofibrosis
     Dosage: 2 INTERNATIONAL UNIT
     Route: 065
     Dates: start: 20170220, end: 20170430
  18. LEVOFLOXACIN MESYLATE [Concomitant]
     Active Substance: LEVOFLOXACIN MESYLATE
     Indication: Opportunistic infection prophylaxis
     Dosage: 500 MG, UNK
     Route: 048
     Dates: start: 20170307, end: 20170426
  19. FLUCONAZOLE [Concomitant]
     Active Substance: FLUCONAZOLE
     Indication: Opportunistic infection prophylaxis
     Dosage: 100 MG, UNK
     Route: 048
     Dates: start: 20170307, end: 20170426
  20. FLUCONAZOLE [Concomitant]
     Active Substance: FLUCONAZOLE
     Indication: Enzyme inhibition

REACTIONS (19)
  - Acute hepatic failure [Fatal]
  - Anaemia [Not Recovered/Not Resolved]
  - Basophil count increased [Recovering/Resolving]
  - Cardiac failure [Not Recovered/Not Resolved]
  - Diarrhoea [Recovering/Resolving]
  - C-reactive protein increased [Recovered/Resolved]
  - C-reactive protein increased [Not Recovered/Not Resolved]
  - Epistaxis [Not Recovered/Not Resolved]
  - Febrile neutropenia [Recovering/Resolving]
  - Hyperkalaemia [Recovering/Resolving]
  - Blood bilirubin increased [Fatal]
  - Neutrophil count decreased [Not Recovered/Not Resolved]
  - Oedema peripheral [Recovered/Resolved]
  - Oral herpes [Recovered/Resolved]
  - Platelet count decreased [Not Recovered/Not Resolved]
  - Pleural effusion [Recovered/Resolved]
  - Pneumonia [Recovered/Resolved]
  - Weight increased [Unknown]
  - White blood cell count decreased [Not Recovered/Not Resolved]

NARRATIVE: CASE EVENT DATE: 20150210
